FAERS Safety Report 8547740-0 (Version None)
Quarter: 2012Q3

REPORT INFORMATION
  Report Type: 
  Country: None (occurrence: None)
  Receive Date: 20120727
  Receipt Date: 20120504
  Transmission Date: 20120928
  Serious: No
  Sender: FDA-Public Use
  Company Number: US-ASTRAZENECA-2012SE29234

PATIENT
  Age: 33 Year
  Sex: Male

DRUGS (1)
  1. SEROQUEL [Suspect]
     Route: 048

REACTIONS (3)
  - SLEEP DISORDER DUE TO A GENERAL MEDICAL CONDITION [None]
  - DYSKINESIA [None]
  - MUSCLE SPASMS [None]
